FAERS Safety Report 5304381-6 (Version None)
Quarter: 2007Q2

REPORT INFORMATION
  Report Type: 
  Country: None (occurrence: None)
  Receive Date: 20070419
  Receipt Date: 20070419
  Transmission Date: 20071010
  Serious: Yes (Life-Threatening, Hospitalization)
  Sender: FDA-Public Use
  Company Number: None

PATIENT
  Sex: Female
  Weight: 73.0291 kg

DRUGS (6)
  1. ESTRADIOL [Suspect]
     Indication: MENOPAUSAL SYMPTOMS
     Dosage: 2 MG  PO  QD
     Route: 048
  2. ORENCIA [Concomitant]
  3. METHOTREXATE [Concomitant]
  4. FLUOXETINE [Concomitant]
  5. LOVASTATIN [Concomitant]
  6. DILACOR XR [Concomitant]

REACTIONS (1)
  - PULMONARY EMBOLISM [None]
